FAERS Safety Report 12991741 (Version 1)
Quarter: 2016Q4

REPORT INFORMATION
  Report Type: Spontaneous
  Country: ES (occurrence: ES)
  Receive Date: 20161201
  Receipt Date: 20161201
  Transmission Date: 20170207
  Serious: Yes (Other)
  Sender: FDA-Public Use
  Company Number: ES-ELI_LILLY_AND_COMPANY-ES201611010031

PATIENT
  Age: 82 Year
  Sex: Female
  Weight: 62 kg

DRUGS (6)
  1. PENTOXIFYLLINE AL [Concomitant]
     Dosage: UNK UNK, UNKNOWN
     Route: 048
     Dates: start: 20130218
  2. PARACETAMOL [Concomitant]
     Active Substance: ACETAMINOPHEN
     Dosage: UNK, UNKNOWN
     Route: 048
     Dates: start: 20150129
  3. TERIPARATIDE [Suspect]
     Active Substance: TERIPARATIDE
     Indication: OSTEOPOROSIS
     Dosage: 20 UG, QD
     Route: 058
     Dates: start: 20160406, end: 20160425
  4. BIPRETERAX                         /01421201/ [Concomitant]
     Active Substance: INDAPAMIDE\PERINDOPRIL ERBUMINE
     Dosage: UNK, UNKNOWN
     Route: 048
     Dates: start: 20150411
  5. LEVOTHYROXINE TEVA [Concomitant]
     Active Substance: LEVOTHYROXINE
     Dosage: UNK, UNKNOWN
     Route: 048
     Dates: start: 20160619
  6. PARIET [Concomitant]
     Active Substance: RABEPRAZOLE SODIUM
     Dosage: UNK, UNKNOWN
     Route: 048

REACTIONS (1)
  - Urinary incontinence [Recovered/Resolved]

NARRATIVE: CASE EVENT DATE: 201604
